FAERS Safety Report 16950262 (Version 1)
Quarter: 2019Q4

REPORT INFORMATION
  Report Type: Spontaneous
  Country: US (occurrence: US)
  Receive Date: 20191023
  Receipt Date: 20191023
  Transmission Date: 20200122
  Serious: No
  Sender: FDA-Public Use
  Company Number: US-PFIZER INC-2019457055

PATIENT
  Sex: Female

DRUGS (1)
  1. SUTENT [Suspect]
     Active Substance: SUNITINIB MALATE
     Indication: SOFT TISSUE SARCOMA
     Dosage: 50 MG, CYCLIC (4 WEEKS ON FOLLOWED BY 2 WEEKS OFF)
     Route: 048

REACTIONS (3)
  - Abdominal pain [Recovered/Resolved]
  - Back pain [Recovered/Resolved]
  - Insomnia [Unknown]
